FAERS Safety Report 7919463-X (Version None)
Quarter: 2011Q4

REPORT INFORMATION
  Report Type: 
  Country: None (occurrence: None)
  Receive Date: 20111117
  Receipt Date: 20111114
  Transmission Date: 20120403
  Serious: Yes (Other)
  Sender: FDA-Public Use
  Company Number: US-PFIZER INC-2011279462

PATIENT
  Sex: Female
  Weight: 68.027 kg

DRUGS (4)
  1. RELAFEN [Concomitant]
     Indication: BACK PAIN
     Dosage: 500 MG, 2X/DAY
     Route: 048
  2. LYRICA [Suspect]
     Indication: BACK PAIN
     Dosage: 50 MG, 2X/DAY
     Route: 048
     Dates: start: 20111102, end: 20111111
  3. LYRICA [Suspect]
     Indication: PAIN
  4. BACLOFEN [Concomitant]
     Indication: MUSCLE SPASMS
     Dosage: 10 MG, 4X/DAY

REACTIONS (7)
  - SUICIDAL IDEATION [None]
  - HEADACHE [None]
  - AGGRESSION [None]
  - RASH [None]
  - OEDEMA PERIPHERAL [None]
  - VISION BLURRED [None]
  - MOOD SWINGS [None]
